FAERS Safety Report 18454749 (Version 2)
Quarter: 2023Q1

REPORT INFORMATION
  Report Type: Report from Study
  Country: US (occurrence: US)
  Receive Date: 20201102
  Receipt Date: 20230127
  Transmission Date: 20230418
  Serious: Yes (Other)
  Sender: FDA-Public Use
  Company Number: US-TAKEDA-2020TUS044465

PATIENT
  Sex: Female

DRUGS (1)
  1. HUMAN IMMUNOGLOBULIN G [Suspect]
     Active Substance: HUMAN IMMUNOGLOBULIN G
     Indication: Immunodeficiency common variable
     Dosage: UNK
     Route: 065

REACTIONS (8)
  - Clostridium difficile infection [Unknown]
  - Multiple sclerosis [Unknown]
  - Tongue neoplasm [Unknown]
  - Hand-eye coordination impaired [Unknown]
  - Cognitive disorder [Unknown]
  - Herpes zoster [Unknown]
  - Treatment noncompliance [Unknown]
  - Sinusitis [Unknown]
